FAERS Safety Report 5413183-1 (Version None)
Quarter: 2007Q3

REPORT INFORMATION
  Report Type: 
  Country: None (occurrence: None)
  Receive Date: 20070716
  Receipt Date: 20070611
  Transmission Date: 20080115
  Serious: Yes (Other)
  Sender: FDA-Public Use
  Company Number: IMP_02999_2007

PATIENT

DRUGS (1)
  1. BUDEPRION 300 MG (NOT SPECIFIED) [Suspect]
     Indication: ANXIETY
     Dates: start: 20000426

REACTIONS (3)
  - ADVERSE DRUG REACTION [None]
  - DRUG INEFFECTIVE FOR UNAPPROVED INDICATION [None]
  - PHARMACEUTICAL PRODUCT COMPLAINT [None]
